FAERS Safety Report 17299828 (Version 1)
Quarter: 2020Q1

REPORT INFORMATION
  Report Type: Spontaneous
  Country: FR (occurrence: FR)
  Receive Date: 20200122
  Receipt Date: 20200122
  Transmission Date: 20200409
  Serious: Yes (Hospitalization)
  Sender: FDA-Public Use
  Company Number: FR-PFIZER INC-2020024240

PATIENT
  Age: 61 Year
  Sex: Male

DRUGS (15)
  1. AMILORIDE [Concomitant]
     Active Substance: AMILORIDE
     Dosage: 5 MG, 1X/DAY (1-0-0)
  2. OXYNORM [Suspect]
     Active Substance: OXYCODONE HYDROCHLORIDE
     Dosage: 75 MG, 1X/DAY
     Route: 048
     Dates: start: 2017
  3. MESTINON [Concomitant]
     Active Substance: PYRIDOSTIGMINE BROMIDE
     Dosage: UNK UNK, 2X/DAY (1-0-1)
  4. ALPRAZOLAM. [Suspect]
     Active Substance: ALPRAZOLAM
     Dosage: 0.5 MG, 1X/DAY (0-0-1)
     Route: 048
     Dates: start: 2012
  5. OXYNORM [Suspect]
     Active Substance: OXYCODONE HYDROCHLORIDE
     Dosage: UNK, 3X/DAY (15-0-10-10)
  6. MONOTILDIEM [Concomitant]
     Active Substance: DILTIAZEM
     Dosage: UNK UNK, 2X/DAY (1-0-1)
  7. CORTANCYL [Concomitant]
     Active Substance: PREDNISONE
     Dosage: STARTED AT 75 MG AND THEN GRADUALLY DECREASED, TO 10 MG FROM START
  8. PERINDOPRIL [Concomitant]
     Active Substance: PERINDOPRIL
     Dosage: UNK UNK, 2X/DAY (1-0-1)
  9. OXYCODONE [Concomitant]
     Active Substance: OXYCODONE
     Dosage: UNK UNK, 2X/DAY (1-0-1)
  10. KLIPAL CODEINE [Suspect]
     Active Substance: ACETAMINOPHEN\CODEINE PHOSPHATE
     Dosage: UNSPECIFIED
     Route: 048
     Dates: start: 2009
  11. LOXEN [NICARDIPINE HYDROCHLORIDE] [Concomitant]
     Active Substance: NICARDIPINE HYDROCHLORIDE
     Dosage: 20 AS NEEDED
  12. MOVENTIG [Concomitant]
     Active Substance: NALOXEGOL OXALATE
     Dosage: 3 DF, WEEKLY (1 TABLET 3 TIMES A WEEK)
  13. TRAMADOL. [Concomitant]
     Active Substance: TRAMADOL
     Dosage: 40 GTT, 3X/DAY (40 DROPS 8H-16H-22H)
  14. MOVICOL [Concomitant]
     Active Substance: POLYETHYLENE GLYCOL 3350\POTASSIUM CHLORIDE\SODIUM BICARBONATE\SODIUM CHLORIDE
     Dosage: UNK, 3X/DAY (2-2-2)
  15. COLOPEG [Concomitant]
     Active Substance: POLYETHYLENE GLYCOL 3350\POTASSIUM CHLORIDE\SODIUM BICARBONATE\SODIUM CHLORIDE\SODIUM SULFATE
     Dosage: UNK UNK, AS NEEDED

REACTIONS (1)
  - Drug abuse [Not Recovered/Not Resolved]

NARRATIVE: CASE EVENT DATE: 2012
